FAERS Safety Report 8831058 (Version 1)
Quarter: 2012Q4

REPORT INFORMATION
  Report Type: Report from Study
  Country: US (occurrence: US)
  Receive Date: 20121009
  Receipt Date: 20121009
  Transmission Date: 20130627
  Serious: Yes (Other)
  Sender: FDA-Public Use
  Company Number: US-PFIZER INC-2011003318

PATIENT
  Age: 42 Year
  Sex: Male
  Weight: 90.7 kg

DRUGS (6)
  1. EFFEXOR XR [Suspect]
     Indication: PARANOID PERSONALITY DISORDER
     Dosage: 75 mg, 2x/day
     Dates: start: 2006
  2. EFFEXOR XR [Suspect]
     Indication: DEPRESSION
     Dosage: 75 mg, 1x/day
  3. EFFEXOR [Suspect]
     Indication: PANIC ATTACK
     Dosage: 75 mg, 1x/day
  4. EFFEXOR [Suspect]
     Indication: BIPOLAR DISORDER
     Dosage: 150 mg, 1x/day
  5. EFFEXOR [Suspect]
     Dosage: 75 mg, 1x/day
  6. TRANXENE [Concomitant]
     Indication: ANXIETY
     Dosage: 15 mg, 3x/day

REACTIONS (10)
  - Shock [Unknown]
  - Confusional state [Unknown]
  - Arthritis [Not Recovered/Not Resolved]
  - Agitation [Unknown]
  - Muscle twitching [Unknown]
  - Hyperhidrosis [Unknown]
  - Drug intolerance [Unknown]
  - Somnolence [Unknown]
  - Abnormal dreams [Unknown]
  - Nightmare [Unknown]
